FAERS Safety Report 26175070 (Version 1)
Quarter: 2025Q4

REPORT INFORMATION
  Report Type: Spontaneous
  Country: EU (occurrence: EU)
  Receive Date: 20251218
  Receipt Date: 20251218
  Transmission Date: 20260118
  Serious: Yes (Life-Threatening)
  Sender: PFIZER
  Company Number: None

PATIENT
  Age: 28 Year
  Sex: Male
  Weight: 80 kg

DRUGS (1)
  1. FILGRASTIM [Suspect]
     Active Substance: FILGRASTIM
     Indication: Haematopoietic stem cell mobilisation
     Dosage: FREQ:12 H;
     Route: 058
     Dates: start: 20251120, end: 20251124

REACTIONS (1)
  - Splenic infarction [Unknown]

NARRATIVE: CASE EVENT DATE: 20251125
